FAERS Safety Report 9074970 (Version 1)
Quarter: 2013Q1

REPORT INFORMATION
  Report Type: Report from Study
  Country: US (occurrence: US)
  Receive Date: 20130131
  Receipt Date: 20130131
  Transmission Date: 20140127
  Serious: Yes (Other)
  Sender: FDA-Public Use
  Company Number: US-ABBOTT-12P-163-1005878-00

PATIENT
  Sex: Female
  Weight: 88.9 kg

DRUGS (13)
  1. HUMIRA [Suspect]
     Indication: PSORIASIS
     Dates: start: 2010, end: 2011
  2. HUMIRA [Suspect]
     Dates: start: 2011
  3. AMITRIPTYLINE [Concomitant]
     Indication: DEPRESSION
  4. AZOPT [Concomitant]
     Indication: GLAUCOMA
  5. CALCIUM PLUS VITAMIN D [Concomitant]
     Indication: MINERAL SUPPLEMENTATION
  6. COMBIGAN SOLUTION EYE GTTS [Concomitant]
     Indication: GLAUCOMA
  7. DILTIAZEM [Concomitant]
     Indication: HYPERTENSION
  8. IRON [Concomitant]
     Indication: MINERAL SUPPLEMENTATION
  9. LASIX [Concomitant]
     Indication: HYPERTENSION
  10. MULTIVITAMIN [Concomitant]
     Indication: VITAMIN SUPPLEMENTATION
  11. SIMVASTATIN [Concomitant]
     Indication: BLOOD CHOLESTEROL INCREASED
  12. XALATHAN DROPS [Concomitant]
     Indication: GLAUCOMA
  13. VITAMIN D [Concomitant]
     Indication: VITAMIN SUPPLEMENTATION

REACTIONS (4)
  - Cataract [Recovered/Resolved]
  - Eye pain [Recovered/Resolved]
  - Loss of consciousness [Recovered/Resolved]
  - Ocular pemphigoid [Recovering/Resolving]
